FAERS Safety Report 4793449-9 (Version None)
Quarter: 2005Q4

REPORT INFORMATION
  Report Type: 
  Country: None (occurrence: None)
  Receive Date: 20051011
  Receipt Date: 20050203
  Transmission Date: 20060501
  Serious: No
  Sender: FDA-Public Use
  Company Number: US-BRISTOL-MYERS SQUIBB COMPANY-12848750

PATIENT
  Age: 54 Year
  Sex: Female
  Weight: 120 kg

DRUGS (12)
  1. GLUCOPHAGE XR [Suspect]
     Indication: DIABETES MELLITUS
     Route: 048
     Dates: start: 20041001
  2. AMARYL [Concomitant]
  3. ZESTRIL [Concomitant]
  4. SYNTHROID [Concomitant]
  5. EXTRA STRENGTH TYLENOL [Concomitant]
  6. HYDROCHLOROTHIAZIDE [Concomitant]
  7. VALTREX [Concomitant]
  8. RANITIDINE [Concomitant]
  9. DETROL [Concomitant]
  10. CLARITIN [Concomitant]
  11. VITAMINS + MINERALS [Concomitant]
  12. CALCIUM GLUCONATE [Concomitant]

REACTIONS (3)
  - CHEST DISCOMFORT [None]
  - PALPITATIONS [None]
  - WEIGHT INCREASED [None]
